FAERS Safety Report 24026130 (Version 4)
Quarter: 2024Q3

REPORT INFORMATION
  Report Type: Report from Study
  Country: CN (occurrence: CN)
  Receive Date: 20240628
  Receipt Date: 20240710
  Transmission Date: 20241016
  Serious: No
  Sender: ROCHE
  Company Number: CN-ROCHE-3487529

PATIENT
  Age: 58 Year
  Sex: Male
  Weight: 75.0 kg

DRUGS (7)
  1. ALECTINIB [Suspect]
     Active Substance: ALECTINIB
     Indication: Lung cancer metastatic
     Route: 048
     Dates: start: 20210804
  2. ALECTINIB [Suspect]
     Active Substance: ALECTINIB
     Route: 048
     Dates: start: 201903
  3. COMPOUND YIGANLING CAPSULE [Concomitant]
     Route: 048
     Dates: start: 20220218, end: 202203
  4. BLOOD TREASURE MIXTURE (UNK INGREDIENTS) [Concomitant]
     Route: 048
     Dates: start: 20220219, end: 20220225
  5. DEXTROSE [Concomitant]
     Active Substance: DEXTROSE\DEXTROSE MONOHYDRATE
     Route: 050
     Dates: start: 20220218, end: 20220219
  6. VITAMIN C [Concomitant]
     Active Substance: ASCORBIC ACID
     Route: 050
     Dates: start: 20220218, end: 20220219
  7. VITAMIN C [Concomitant]
     Active Substance: ASCORBIC ACID
     Route: 050
     Dates: start: 20221011, end: 20221013

REACTIONS (1)
  - Blood bilirubin increased [Not Recovered/Not Resolved]

NARRATIVE: CASE EVENT DATE: 20220217
